FAERS Safety Report 23602899 (Version 1)
Quarter: 2024Q1

REPORT INFORMATION
  Report Type: Spontaneous
  Country: US (occurrence: US)
  Receive Date: 20240306
  Receipt Date: 20240306
  Transmission Date: 20240410
  Serious: No
  Sender: FDA-Public Use
  Company Number: US-BIOGEN-2024BI01253179

PATIENT
  Sex: Male

DRUGS (2)
  1. SKYCLARYS [Suspect]
     Active Substance: OMAVELOXOLONE
     Indication: Friedreich^s ataxia
     Route: 050
     Dates: start: 20240223
  2. CREATINE MONOHYDRATE [Suspect]
     Active Substance: CREATINE MONOHYDRATE
     Indication: Product used for unknown indication
     Route: 050

REACTIONS (1)
  - Diarrhoea [Unknown]
